FAERS Safety Report 7393561-4 (Version None)
Quarter: 2011Q2

REPORT INFORMATION
  Report Type: 
  Country: None (occurrence: None)
  Receive Date: 20110405
  Receipt Date: 20110323
  Transmission Date: 20111010
  Serious: Yes (Hospitalization)
  Sender: FDA-Public Use
  Company Number: CL-BAYER-2011-025240

PATIENT
  Sex: Female

DRUGS (1)
  1. YAZ [Suspect]
     Indication: CONTRACEPTION

REACTIONS (5)
  - ABDOMINAL DISTENSION [None]
  - CHOLECYSTECTOMY [None]
  - CONSTIPATION [None]
  - FLATULENCE [None]
  - ABDOMINAL DISCOMFORT [None]
